FAERS Safety Report 17151133 (Version 1)
Quarter: 2019Q4

REPORT INFORMATION
  Report Type: Spontaneous
  Country: NO (occurrence: NO)
  Receive Date: 20191213
  Receipt Date: 20191213
  Transmission Date: 20200122
  Serious: Yes (Life-Threatening, Hospitalization)
  Sender: FDA-Public Use
  Company Number: NO-009507513-1912NOR000966

PATIENT
  Age: 50 Year
  Sex: Male

DRUGS (9)
  1. ESCITALOPRAM [Concomitant]
     Active Substance: ESCITALOPRAM OXALATE
     Dosage: 10 MILLIGRAM, QD
     Route: 048
  2. PANTOPRAZOLE [Concomitant]
     Active Substance: PANTOPRAZOLE
     Dosage: 20 MILLIGRAM, QD
     Route: 048
  3. IMOVANE [Concomitant]
     Active Substance: ZOPICLONE
     Dosage: 1 TABLET EVENING WHEN NEEDED
     Route: 048
  4. AFIPRAN [Concomitant]
     Active Substance: METOCLOPRAMIDE HYDROCHLORIDE
     Dosage: 1 TABLET 3 TIMES A DAY WHEN NEEDED
     Route: 048
  5. DULCOLAX NOS [Concomitant]
     Active Substance: BISACODYL OR DOCUSATE SODIUM
     Dosage: 1 TABLET DAILY WHEN NEEDED
     Route: 048
  6. TEMODAL [Suspect]
     Active Substance: TEMOZOLOMIDE
     Indication: ANAPLASTIC ASTROCYTOMA
     Dosage: TREATED WITH TEMOZOLOMIDE POSTOPERATIVE IN 2007 AND 2016 WITHOUT COMPLICATIONS. DUE TO TUMOR PROGRES
     Route: 048
     Dates: start: 20191025, end: 20191029
  7. PARACET [Concomitant]
     Active Substance: ACETAMINOPHEN
     Dosage: 1 TABLET MAXIMUM 4 TIMES A DAY
     Route: 048
  8. LAXOBERAL [Concomitant]
     Active Substance: SODIUM PICOSULFATE
     Dosage: WHEN NEEDED
     Route: 048
  9. ALBYL-E [Concomitant]
     Active Substance: ASPIRIN\MAGNESIUM OXIDE
     Route: 048

REACTIONS (1)
  - Hyponatraemia [Recovered/Resolved]

NARRATIVE: CASE EVENT DATE: 20191030
